FAERS Safety Report 7676638-5 (Version None)
Quarter: 2011Q3

REPORT INFORMATION
  Report Type: 
  Country: None (occurrence: None)
  Receive Date: 20110809
  Receipt Date: 20110809
  Transmission Date: 20111222
  Serious: Yes (Other)
  Sender: FDA-Public Use
  Company Number: None

PATIENT
  Sex: Female
  Weight: 69.8539 kg

DRUGS (2)
  1. BUPROPION HCL [Suspect]
     Indication: PREMENSTRUAL SYNDROME
     Dates: start: 20090101, end: 20090201
  2. BUPROPION HCL [Suspect]
     Indication: DEPRESSION
     Dates: start: 20090101, end: 20090201

REACTIONS (3)
  - AGITATION [None]
  - PRODUCT SUBSTITUTION ISSUE [None]
  - CONSTIPATION [None]
